FAERS Safety Report 23204831 (Version 2)
Quarter: 2024Q3

REPORT INFORMATION
  Report Type: Spontaneous
  Country: BE (occurrence: BE)
  Receive Date: 20231120
  Receipt Date: 20240708
  Transmission Date: 20241017
  Serious: Yes (Death, Other)
  Sender: MYLAN
  Company Number: BE-AMGEN-BELSP2023162040

PATIENT
  Age: 30 Year
  Sex: Female

DRUGS (17)
  1. EPIRUBICIN [Suspect]
     Active Substance: EPIRUBICIN
     Indication: Triple negative breast cancer
     Dosage: UNK (FOR 1 CYCLE)
     Route: 065
  2. METHOTREXATE [Suspect]
     Active Substance: METHOTREXATE
     Indication: Triple negative breast cancer
     Dosage: UNK (CMF-VP CHEMOTHERAPY FOR 1 CYCLE)
     Route: 065
  3. VINCRISTINE [Suspect]
     Active Substance: VINCRISTINE
     Indication: Triple negative breast cancer
     Dosage: UNK (CMF-VP CHEMOTHERAPY FOR 1 CYCLE)
     Route: 065
  4. PREDNISONE [Suspect]
     Active Substance: PREDNISONE
     Indication: Triple negative breast cancer
     Dosage: UNK (CMF-VP CHEMOTHERAPY FOR 1 CYCLE)
     Route: 065
  5. CYCLOPHOSPHAMIDE [Suspect]
     Active Substance: CYCLOPHOSPHAMIDE
     Indication: Triple negative breast cancer
     Dosage: UNK (CMF-VP CHEMOTHERAPY FOR 1 CYCLE)
     Route: 065
  6. FLUOROURACIL [Suspect]
     Active Substance: FLUOROURACIL
     Indication: Triple negative breast cancer
     Dosage: UNK (CMF-VP CHEMOTHERAPY FOR 1 CYCLE)
     Route: 065
  7. FLUOROURACIL [Suspect]
     Active Substance: FLUOROURACIL
     Dosage: UNK (FOR 2 CYCLES)
     Route: 065
  8. VINORELBINE [Suspect]
     Active Substance: VINORELBINE TARTRATE
     Indication: Triple negative breast cancer
     Dosage: UNK (FOR 2 CYCLES)
     Route: 065
  9. PIQRAY [Suspect]
     Active Substance: ALPELISIB
     Indication: Triple negative breast cancer
     Dosage: 300 MILLIGRAM,QD,(300 MG, EVERY 1 DAY)
     Route: 065
  10. PIQRAY [Suspect]
     Active Substance: ALPELISIB
     Dosage: 200 MILLIGRAM,QD,(200 MG, EVERY 1 DAY)
     Route: 065
  11. ATEZOLIZUMAB [Concomitant]
     Active Substance: ATEZOLIZUMAB
     Indication: Metastases to liver
     Dosage: UNK (FOR 4 CYCLES)
     Route: 065
  12. ATEZOLIZUMAB [Concomitant]
     Active Substance: ATEZOLIZUMAB
     Indication: Triple negative breast cancer
     Dosage: UNK (MAINTENANCE DOSE FOR 3 CYCLES)
     Route: 065
  13. BEVACIZUMAB [Concomitant]
     Active Substance: BEVACIZUMAB
     Indication: Breast cancer metastatic
     Dosage: UNK (CONCENTRATE FOR SOLUTION FOR INFUSION, DOSAGE1, MAINTENANCE DOSE FOR 3 CYCLES)
     Route: 065
  14. BEVACIZUMAB [Concomitant]
     Active Substance: BEVACIZUMAB
     Indication: Triple negative breast cancer
  15. PACLITAXEL [Concomitant]
     Active Substance: PACLITAXEL
     Indication: Triple negative breast cancer
     Dosage: UNK (FOR 4 CYCLES)
     Route: 065
  16. CARBOPLATIN [Concomitant]
     Active Substance: CARBOPLATIN
     Indication: Triple negative breast cancer
     Dosage: UNK (FOR 4 CYCLES)
     Route: 065
  17. CARBOPLATIN [Concomitant]
     Active Substance: CARBOPLATIN
     Indication: Metastases to liver

REACTIONS (6)
  - Death [Fatal]
  - Breast cancer metastatic [Unknown]
  - Rash [Unknown]
  - Drug ineffective [Unknown]
  - Disease progression [Unknown]
  - Therapy partial responder [Unknown]
